FAERS Safety Report 5534887-6 (Version None)
Quarter: 2007Q4

REPORT INFORMATION
  Report Type: 
  Country: None (occurrence: None)
  Receive Date: 20071205
  Receipt Date: 20071130
  Transmission Date: 20080405
  Serious: No
  Sender: FDA-Public Use
  Company Number: US-BOEHRINGER INGELHEIM PHARMACEUTICALS, INC.-2007-BP-24633BP

PATIENT
  Sex: Female

DRUGS (19)
  1. SPIRIVA [Suspect]
     Indication: CHRONIC OBSTRUCTIVE PULMONARY DISEASE
     Route: 055
     Dates: start: 20060201, end: 20060201
  2. SPIRIVA [Suspect]
     Indication: BRONCHIECTASIS
  3. SPIRIVA [Suspect]
     Indication: EMPHYSEMA
  4. SPIRIVA [Suspect]
     Indication: BRONCHITIS CHRONIC
  5. SPIRIVA [Suspect]
     Indication: ASTHMA
  6. ALBUTEROL SULFATE [Concomitant]
     Indication: DYSPNOEA
  7. DIOVAN [Concomitant]
  8. PREVACID [Concomitant]
  9. SINGULAIR [Concomitant]
  10. LEVOXYL [Concomitant]
  11. MUCINEX [Concomitant]
  12. NASONEX [Concomitant]
  13. OMEGA 3 [Concomitant]
  14. GARLIC CAPSULES [Concomitant]
  15. MSM [Concomitant]
  16. ENZYMES [Concomitant]
  17. VITAMINS/MINERALS [Concomitant]
  18. PHOSPHATIDYL SERINE [Concomitant]
  19. FLORA  SOURCE [Concomitant]

REACTIONS (3)
  - APHONIA [None]
  - DYSPHONIA [None]
  - VISION BLURRED [None]
